FAERS Safety Report 17957038 (Version 1)
Quarter: 2020Q2

REPORT INFORMATION
  Report Type: Spontaneous
  Country: NL (occurrence: NL)
  Receive Date: 20200629
  Receipt Date: 20200629
  Transmission Date: 20200714
  Serious: Yes (Death, Hospitalization)
  Sender: FDA-Public Use
  Company Number: NL-AMNEAL PHARMACEUTICALS-2020-AMRX-01800

PATIENT
  Age: 63 Year
  Sex: Female

DRUGS (1)
  1. AZATHIOPRINE. [Suspect]
     Active Substance: AZATHIOPRINE
     Indication: MYASTHENIA GRAVIS
     Route: 065

REACTIONS (2)
  - Cytomegalovirus viraemia [Unknown]
  - Haemophagocytic lymphohistiocytosis [Fatal]
